FAERS Safety Report 9155639 (Version 1)
Quarter: 2013Q1

REPORT INFORMATION
  Report Type: Spontaneous
  Country: FR (occurrence: FR)
  Receive Date: 20130311
  Receipt Date: 20130311
  Transmission Date: 20140127
  Serious: Yes (Disabling)
  Sender: FDA-Public Use
  Company Number: FR-MERCK-1303FRA000742

PATIENT
  Age: 39 Year
  Sex: Male
  Weight: 69 kg

DRUGS (5)
  1. VIRAFERONPEG [Suspect]
     Dosage: UNK
     Route: 058
     Dates: start: 20010901, end: 20020201
  2. VIDEX [Concomitant]
     Dosage: 1 DF, QD
     Route: 048
  3. VIRACEPT [Concomitant]
     Dosage: 5 DF, QD
     Route: 048
  4. EPIVIR [Concomitant]
     Dosage: 2 DF, QD
  5. CORDARONE [Concomitant]
     Dosage: 200 MG, QD

REACTIONS (1)
  - Pulmonary arterial hypertension [Not Recovered/Not Resolved]
